FAERS Safety Report 25651416 (Version 1)
Quarter: 2025Q3

REPORT INFORMATION
  Report Type: Spontaneous
  Country: CN (occurrence: CN)
  Receive Date: 20250806
  Receipt Date: 20250806
  Transmission Date: 20251021
  Serious: Yes (Other)
  Sender: PFIZER
  Company Number: CN-PFIZER INC-PV202500093919

PATIENT
  Age: 3 Year
  Sex: Male

DRUGS (1)
  1. XYNTHA [Suspect]
     Active Substance: MOROCTOCOG ALFA
     Dosage: 500 IU, ALTERNATE DAY
     Route: 040

REACTIONS (2)
  - Epilepsy [Not Recovered/Not Resolved]
  - Contusion [Unknown]
